FAERS Safety Report 5944559-1 (Version None)
Quarter: 2008Q4

REPORT INFORMATION
  Report Type: 
  Country: None (occurrence: None)
  Receive Date: 20081107
  Receipt Date: 20081103
  Transmission Date: 20090506
  Serious: Yes (Other)
  Sender: FDA-Public Use
  Company Number: US-ASTRAZENECA-2008UW13052

PATIENT
  Age: 76 Year
  Sex: Female
  Weight: 56.7 kg

DRUGS (5)
  1. CRESTOR [Suspect]
     Indication: BLOOD CHOLESTEROL INCREASED
     Route: 048
     Dates: start: 20080613
  2. CRESTOR [Suspect]
     Dosage: 5 MG EVERY 3 DAYS
     Route: 048
  3. SYNTHROID [Concomitant]
  4. MICARDIS [Concomitant]
  5. CHELATED MAGNESIUM [Concomitant]

REACTIONS (12)
  - ABDOMINAL PAIN [None]
  - CHEST DISCOMFORT [None]
  - DIZZINESS [None]
  - DYSPHONIA [None]
  - FATIGUE [None]
  - GLOSSODYNIA [None]
  - HEADACHE [None]
  - LIP SWELLING [None]
  - MUSCLE SPASMS [None]
  - MYALGIA [None]
  - NAUSEA [None]
  - OROPHARYNGEAL PAIN [None]
